FAERS Safety Report 24020636 (Version 3)
Quarter: 2024Q4

REPORT INFORMATION
  Report Type: Spontaneous
  Country: FR (occurrence: FR)
  Receive Date: 20240627
  Receipt Date: 20241105
  Transmission Date: 20250115
  Serious: Yes (Life-Threatening, Hospitalization, Other)
  Sender: FRESENIUS KABI
  Company Number: None

PATIENT
  Age: 76 Year
  Sex: Male
  Weight: 45 kg

DRUGS (7)
  1. PROPOFOL [Suspect]
     Active Substance: PROPOFOL
     Indication: Anaesthesia
     Dosage: 120 MG, 1 DOSAGE TOTAL?FORM OF ADMIN: EMULSION FOR INJECTION ?ROUTE OF ADMIN: INTRAVENOUS
     Dates: start: 20240409, end: 20240409
  2. ROCURONIUM BROMIDE [Suspect]
     Active Substance: ROCURONIUM BROMIDE
     Indication: Anaesthesia
     Dosage: 50 MG, 1 DOSAGE TOTAL, SOLUTION INJECTABLE/FOR INFUSION?FOA: SOLUTION FOR INJECTION ?ROA: INTRAVENOU
     Dates: start: 20240409, end: 20240409
  3. SUFENTANIL [Suspect]
     Active Substance: SUFENTANIL
     Indication: Anaesthesia
     Dosage: 10 ?G, 1 DOSAGE TOTAL?ROA: INTRAVENOUS
     Dates: start: 20240409, end: 20240409
  4. ROCURONIUM BROMIDE [Concomitant]
     Active Substance: ROCURONIUM BROMIDE
     Indication: Anaesthesia
     Dosage: 1 DOSAGE FORM?ROA: INTRAVENOUS
     Dates: start: 20240802, end: 20240802
  5. DIPRIVAN [Concomitant]
     Active Substance: PROPOFOL
     Indication: Anaesthesia
     Dosage: 150 MILLIGRAM?FOA: SOLUTION FOR INJECTION ?ROA: INTRAVENOUS
     Dates: start: 20240802, end: 20240802
  6. SUFENTA [Concomitant]
     Active Substance: SUFENTANIL CITRATE
     Indication: Anaesthesia
     Dosage: 15 MICROGRAM?FOA: SOLUTION FOR INJECTION ?ROA: INTRAVENOUS
     Dates: start: 20240802, end: 20240802
  7. KETAMINE [Concomitant]
     Active Substance: KETAMINE
     Indication: Anaesthesia
     Dosage: 20 MILLIGRAM?FOA: SOLUTION FOR INJECTION ?ROA: INTRAVENOUS
     Dates: start: 20240802, end: 20240802

REACTIONS (1)
  - Anaphylactic shock [Recovered/Resolved]

NARRATIVE: CASE EVENT DATE: 20240409
